FAERS Safety Report 5758086-8 (Version None)
Quarter: 2008Q2

REPORT INFORMATION
  Report Type: 
  Country: None (occurrence: None)
  Receive Date: 20080602
  Receipt Date: 20080602
  Transmission Date: 20081010
  Serious: Yes (Hospitalization)
  Sender: FDA-Public Use
  Company Number: None

PATIENT
  Age: 73 Year
  Sex: Male
  Weight: 68 kg

DRUGS (9)
  1. FUROSEMIDE [Suspect]
  2. VITAMIN D [Suspect]
  3. ASCORBIC ACID [Suspect]
     Dosage: 680 MG /D
  4. LISINOPRIL [Suspect]
     Dosage: 5 MG /D PO
     Route: 048
  5. VITAMIN A [Suspect]
     Dosage: 10000 IU /D
  6. CACO3 [Suspect]
     Dosage: 650 MG /D
  7. LEVOTHYROXINE SODIUM [Concomitant]
  8. MAGNESIUM OXIDE [Concomitant]
  9. NIACIN [Concomitant]

REACTIONS (5)
  - HAEMODIALYSIS [None]
  - HYPEROXALURIA [None]
  - KIDNEY FIBROSIS [None]
  - NEPHROPATHY [None]
  - RENAL FAILURE [None]
